FAERS Safety Report 10569291 (Version 1)
Quarter: 2014Q4

REPORT INFORMATION
  Report Type: Spontaneous
  Country: DE (occurrence: DE)
  Receive Date: 20141106
  Receipt Date: 20141106
  Transmission Date: 20150529
  Serious: Yes (Hospitalization)
  Sender: FDA-Public Use
  Company Number: DE-TAKEDA-2014TUS010889

PATIENT
  Age: 68 Year
  Sex: Male
  Weight: 94 kg

DRUGS (11)
  1. KOMBIGLYZE (KOMBIGLYZE) [Concomitant]
     Dosage: 5/2000 MG
  2. MIRTAZAPINE. [Concomitant]
     Active Substance: MIRTAZAPINE
     Dosage: 30 MG, BID
  3. METOPROLOL (METOPROLOL) [Concomitant]
     Active Substance: METOPROLOL
     Dosage: 95 MG, BID
  4. RAMIPRIL. [Concomitant]
     Active Substance: RAMIPRIL
     Dosage: 2.5 MG
  5. ASS (ACETYLSALICYLIC ACID) [Concomitant]
     Dosage: 100 MG, QD
  6. LERCANIDIPINE (LERCANIDIPINE) [Concomitant]
     Active Substance: LERCANIDIPINE
     Dosage: UNK, BID
  7. PANTOZOL [Concomitant]
     Active Substance: PANTOPRAZOLE SODIUM
     Dosage: 40 MG, QD
  8. SIMVASTATIN. [Concomitant]
     Active Substance: SIMVASTATIN
     Dosage: 40 MG, QD
  9. TORASEMID [Concomitant]
     Active Substance: TORSEMIDE
     Dosage: 20 MG, QD
  10. RAMIPRIL. [Concomitant]
     Active Substance: RAMIPRIL
     Dosage: 5/25 MG
  11. ADENURIC [Suspect]
     Active Substance: FEBUXOSTAT
     Indication: PRODUCT USED FOR UNKNOWN INDICATION
     Dosage: 80 MG, UNK
     Route: 048
     Dates: start: 20141022, end: 20141030

REACTIONS (1)
  - Tongue oedema [Recovered/Resolved]

NARRATIVE: CASE EVENT DATE: 20141031
